FAERS Safety Report 25759125 (Version 1)
Quarter: 2025Q3

REPORT INFORMATION
  Report Type: Spontaneous
  Country: AU (occurrence: AU)
  Receive Date: 20250904
  Receipt Date: 20250904
  Transmission Date: 20251020
  Serious: Yes (Hospitalization, Other)
  Sender: CELLTRION
  Company Number: AU-CELLTRION INC.-2021AU019796

PATIENT

DRUGS (7)
  1. INFLIXIMAB [Suspect]
     Active Substance: INFLIXIMAB
     Indication: Crohn^s disease
  2. INFLIXIMAB [Suspect]
     Active Substance: INFLIXIMAB
     Indication: Arthritis enteropathic
     Dates: start: 202301
  3. INFLIXIMAB [Suspect]
     Active Substance: INFLIXIMAB
     Dates: start: 202408
  4. INFLIXIMAB [Suspect]
     Active Substance: INFLIXIMAB
  5. INFLIXIMAB [Suspect]
     Active Substance: INFLIXIMAB
  6. BUDESONIDE [Concomitant]
     Active Substance: BUDESONIDE
  7. THIOGUANINE [Concomitant]
     Active Substance: THIOGUANINE

REACTIONS (16)
  - Crohn^s disease [Unknown]
  - Arthritis bacterial [Unknown]
  - Arthralgia [Unknown]
  - Drug level decreased [Unknown]
  - C-reactive protein abnormal [Unknown]
  - Platelet disorder [Unknown]
  - Haemoglobin abnormal [Unknown]
  - Joint swelling [Unknown]
  - Pyrexia [Unknown]
  - Chest pain [Unknown]
  - Hyperhidrosis [Unknown]
  - Bronchitis [Unknown]
  - Pain [Unknown]
  - Arthralgia [Unknown]
  - Intentional product use issue [Unknown]
  - Intentional product use issue [Unknown]
